FAERS Safety Report 9400207 (Version 2)
Quarter: 2013Q3

REPORT INFORMATION
  Report Type: Spontaneous
  Country: JP (occurrence: JP)
  Receive Date: 20130715
  Receipt Date: 20130830
  Transmission Date: 20140515
  Serious: No
  Sender: FDA-Public Use
  Company Number: JP-UCBSA-091497

PATIENT
  Sex: 0

DRUGS (2)
  1. E KEPPRA [Suspect]
     Route: 048
  2. SELENICA-R [Concomitant]
     Dosage: ONCE EVERY NOON
     Route: 048

REACTIONS (2)
  - Somnolence [Not Recovered/Not Resolved]
  - Inappropriate schedule of drug administration [Unknown]
